FAERS Safety Report 6939424-7 (Version None)
Quarter: 2010Q3

REPORT INFORMATION
  Report Type: 
  Country: None (occurrence: None)
  Receive Date: 20100819
  Receipt Date: 20100805
  Transmission Date: 20110219
  Serious: Yes (Hospitalization)
  Sender: FDA-Public Use
  Company Number: 1DA_00409

PATIENT
  Sex: Male

DRUGS (2)
  1. INDERAL [Suspect]
     Indication: FALL
     Dosage: 7MG TID
     Route: 048
     Dates: start: 20100101
  2. VI-DE 3 (COLECALCIFEROL) [Concomitant]

REACTIONS (3)
  - NASAL CONGESTION [None]
  - OBSTRUCTIVE AIRWAYS DISORDER [None]
  - WHEEZING [None]
